FAERS Safety Report 6330753-7 (Version None)
Quarter: 2009Q3

REPORT INFORMATION
  Report Type: 
  Country: None (occurrence: None)
  Receive Date: 20090827
  Receipt Date: 20090724
  Transmission Date: 20100115
  Serious: Yes (Other)
  Sender: FDA-Public Use
  Company Number: US-PFIZER INC-2004111461

PATIENT
  Sex: Female
  Weight: 63 kg

DRUGS (2)
  1. PREMARIN [Suspect]
     Indication: HORMONE REPLACEMENT THERAPY
     Dosage: 0.9 MG, UNK
     Dates: start: 19830101
  2. PREMARIN [Suspect]
     Dosage: 1.25 MG, UNK
     Dates: start: 19830401, end: 20040401

REACTIONS (1)
  - OVARIAN CANCER [None]
